FAERS Safety Report 4559242-7 (Version None)
Quarter: 2005Q1

REPORT INFORMATION
  Report Type: 
  Country: None (occurrence: None)
  Receive Date: 20050121
  Receipt Date: 20050121
  Transmission Date: 20050727
  Serious: Yes (Life-Threatening, Hospitalization)
  Sender: FDA-Public Use
  Company Number: None

PATIENT
  Age: 27 Year
  Sex: Male
  Weight: 136.0791 kg

DRUGS (1)
  1. REDUX [Suspect]
     Indication: OBESITY
     Dosage: ORAL
     Route: 048
     Dates: start: 19951101, end: 19960201

REACTIONS (2)
  - AORTIC ANEURYSM [None]
  - AORTIC VALVE STENOSIS [None]
